FAERS Safety Report 8050259-7 (Version None)
Quarter: 2012Q1

REPORT INFORMATION
  Report Type: 
  Country: None (occurrence: None)
  Receive Date: 20120117
  Receipt Date: 20120110
  Transmission Date: 20120608
  Serious: Yes (Hospitalization)
  Sender: FDA-Public Use
  Company Number: US-PFIZER INC-2012008244

PATIENT
  Age: 41 Year
  Sex: Female
  Weight: 80.816 kg

DRUGS (2)
  1. PHENYTOIN [Suspect]
     Dosage: UNK
  2. FLOLAN [Suspect]
     Indication: PULMONARY ARTERIAL HYPERTENSION
     Dosage: 50 NG/KG/MIN
     Dates: start: 20110602

REACTIONS (5)
  - VISION BLURRED [None]
  - DRUG LEVEL DECREASED [None]
  - DIPLOPIA [None]
  - EYE MOVEMENT DISORDER [None]
  - EYELID DISORDER [None]
